FAERS Safety Report 15798582 (Version 1)
Quarter: 2019Q1

REPORT INFORMATION
  Report Type: Spontaneous
  Country: US (occurrence: US)
  Receive Date: 20190102
  Receipt Date: 20190102
  Transmission Date: 20190417
  Serious: No
  Sender: FDA-Public Use
  Company Number: None

PATIENT

DRUGS (2)
  1. EPINEPHRINE EPINEPHRINE [Suspect]
     Active Substance: EPINEPHRINE
     Dosage: ROUTE: IM OR SQ
  2. EPHEDRINE EPHEDRINE [Suspect]
     Active Substance: EPHEDRINE
     Route: 042

REACTIONS (1)
  - Intercepted product storage error [None]
